FAERS Safety Report 6330854-3 (Version None)
Quarter: 2009Q3

REPORT INFORMATION
  Report Type: 
  Country: None (occurrence: None)
  Receive Date: 20090827
  Receipt Date: 20090825
  Transmission Date: 20100115
  Serious: Yes (Death)
  Sender: FDA-Public Use
  Company Number: PHHY2009FR35140

PATIENT
  Age: 62 Year
  Sex: Male

DRUGS (4)
  1. TEGRETOL-XR [Suspect]
     Indication: EPILEPSY
     Dosage: 2.5 DF DAILY
     Dates: start: 20090528
  2. KEPPRA [Concomitant]
     Dosage: 500 4 DF DAILY
     Dates: start: 20060101
  3. PREVISCAN [Concomitant]
     Dosage: 1.25 DF DAILY
  4. PREVISCAN [Concomitant]
     Dosage: 1.75-2 DF DAILY

REACTIONS (4)
  - BALANCE DISORDER [None]
  - CEREBRAL HAEMORRHAGE [None]
  - COMA [None]
  - HYPONATRAEMIA [None]
